FAERS Safety Report 9425644 (Version 2)
Quarter: 2014Q1

REPORT INFORMATION
  Report Type: Spontaneous
  Country: US (occurrence: US)
  Receive Date: 20130729
  Receipt Date: 20140103
  Transmission Date: 20141002
  Serious: Yes (Death, Hospitalization)
  Sender: FDA-Public Use
  Company Number: US-B.I. PHARMACEUTICALS,INC./RIDGEFIELD-2013-BI-21987BP

PATIENT
  Age: 86 Year
  Sex: Female

DRUGS (7)
  1. PRADAXA [Suspect]
     Indication: ATRIAL FIBRILLATION
     Dosage: 150 MG
     Route: 048
     Dates: start: 20111218, end: 20120226
  2. METOPROLOL [Concomitant]
     Dosage: 50 MG
     Route: 048
     Dates: start: 201201, end: 201202
  3. PRESERVISION [Concomitant]
     Route: 048
  4. PROTONIX [Concomitant]
     Dosage: 40 MG
     Route: 048
  5. COZAAR [Concomitant]
     Dosage: 25 MG
     Route: 048
  6. DORZOLAMIDE TIMOLOL [Concomitant]
     Route: 031
  7. FLONASE [Concomitant]

REACTIONS (2)
  - Gastrointestinal haemorrhage [Fatal]
  - Haemorrhagic anaemia [Unknown]
